FAERS Safety Report 5750558-5 (Version None)
Quarter: 2008Q2

REPORT INFORMATION
  Report Type: 
  Country: None (occurrence: None)
  Receive Date: 20080523
  Receipt Date: 20080523
  Transmission Date: 20081010
  Serious: Yes (Life-Threatening, Hospitalization, Disabling)
  Sender: FDA-Public Use
  Company Number: None

PATIENT
  Age: 7 Year
  Sex: Male
  Weight: 23.587 kg

DRUGS (2)
  1. SINGULAIR [Suspect]
     Indication: ALLERGY TO ANIMAL
     Dosage: ONCE DAILY  DAILY PO
     Route: 048
     Dates: start: 20040601, end: 20080522
  2. SINGULAIR [Suspect]
     Indication: MULTIPLE ALLERGIES
     Dosage: ONCE DAILY  DAILY PO
     Route: 048
     Dates: start: 20040601, end: 20080522

REACTIONS (5)
  - ELEVATED MOOD [None]
  - MOOD ALTERED [None]
  - PERSONALITY DISORDER [None]
  - SELF-INJURIOUS IDEATION [None]
  - SUICIDAL IDEATION [None]
